FAERS Safety Report 16803705 (Version 1)
Quarter: 2019Q3

REPORT INFORMATION
  Report Type: Spontaneous
  Country: US (occurrence: US)
  Receive Date: 20190913
  Receipt Date: 20190913
  Transmission Date: 20191005
  Serious: Yes (Other)
  Sender: FDA-Public Use
  Company Number: US-009507513-1909USA002676

PATIENT
  Age: 84 Year
  Sex: Female
  Weight: 63 kg

DRUGS (9)
  1. ICLUSIG [Suspect]
     Active Substance: PONATINIB
     Dosage: 30 MILLIGRAM, QD
     Route: 048
     Dates: start: 201903
  2. ICLUSIG [Suspect]
     Active Substance: PONATINIB
     Dosage: 15 MILLIGRAM, QD
     Route: 048
     Dates: start: 2019, end: 2019
  3. ZOCOR [Suspect]
     Active Substance: SIMVASTATIN
     Indication: BLOOD CHOLESTEROL
     Dosage: UNK
     Route: 048
     Dates: end: 2019
  4. ICLUSIG [Suspect]
     Active Substance: PONATINIB
     Dosage: 30 MILLIGRAM, QD
     Route: 048
     Dates: start: 201903
  5. ICLUSIG [Suspect]
     Active Substance: PONATINIB
     Indication: ACUTE LYMPHOCYTIC LEUKAEMIA
     Dosage: 45 MILLIGRAM, QD
     Route: 048
     Dates: start: 20180822
  6. ICLUSIG [Suspect]
     Active Substance: PONATINIB
     Dosage: 30 UNK
     Route: 048
  7. ICLUSIG [Suspect]
     Active Substance: PONATINIB
     Dosage: 30 MILLIGRAM, QD
     Route: 048
  8. VINCRISTINE [Concomitant]
     Active Substance: VINCRISTINE
  9. ICLUSIG [Suspect]
     Active Substance: PONATINIB
     Dosage: 15 MILLIGRAM, QD
     Route: 048

REACTIONS (17)
  - Hypertension [Unknown]
  - Fatigue [Unknown]
  - Asthenia [Recovering/Resolving]
  - Dysphonia [Unknown]
  - Pain [Unknown]
  - Constipation [Unknown]
  - Rash [Recovering/Resolving]
  - Weight decreased [Unknown]
  - Blood cholesterol increased [Unknown]
  - Abdominal discomfort [Unknown]
  - Liver function test increased [Recovering/Resolving]
  - Dry skin [Unknown]
  - Pericardial effusion [Unknown]
  - Retching [Unknown]
  - Malaise [Unknown]
  - Somnolence [Unknown]
  - Skin exfoliation [Unknown]

NARRATIVE: CASE EVENT DATE: 20180904
